FAERS Safety Report 10043265 (Version 3)
Quarter: 2014Q2

REPORT INFORMATION
  Report Type: Report from Study
  Country: DE (occurrence: DE)
  Receive Date: 20140328
  Receipt Date: 20140526
  Transmission Date: 20141212
  Serious: Yes (Hospitalization)
  Sender: FDA-Public Use
  Company Number: PHHY2014DE037074

PATIENT
  Sex: Male

DRUGS (15)
  1. AMN107 [Suspect]
     Indication: CHRONIC MYELOID LEUKAEMIA
     Dosage: 600 MG, DAILY
     Route: 048
     Dates: start: 20130510, end: 20140102
  2. ASS [Concomitant]
     Indication: HYPERTENSION
     Dosage: 100 MG, DAILY
  3. RAMIPRIL ALMUS [Concomitant]
     Indication: HYPERTENSION
     Dosage: 15 MG, DAILY
  4. EXFORGE HCT [Concomitant]
     Indication: HYPERTENSION
     Dosage: 25 MG, DAILY
  5. CLONISTADA [Concomitant]
     Indication: HYPERTENSION
     Dosage: 0.3 MG, DAILY
  6. METOPROLOL [Concomitant]
     Indication: HYPERTENSION
     Dosage: 200 MG, DAILY
  7. TORASEMID [Concomitant]
     Indication: DEHYDRATION
     Dosage: 20 MG, DAILY
  8. CALCIUM ACETAT [Concomitant]
     Indication: PROPHYLAXIS
     Dosage: 1425 MG, DAILY
  9. EINSALPHA [Concomitant]
     Indication: BONE DISORDER
     Dosage: 0.5 UG, DAILY
  10. ALLOPURINOL [Concomitant]
     Dosage: 150 MG, DAILY
  11. ATORVASTATIN [Concomitant]
     Indication: HYPERCHOLESTEROLAEMIA
     Dosage: 40 MG, DAILY
  12. OMACOR [Concomitant]
     Indication: HYPERTRIGLYCERIDAEMIA
     Dosage: 4000 MG, DAILY
  13. DEKRISTOL [Concomitant]
     Indication: VITAMIN D DEFICIENCY
     Dosage: 20000 IU, DAILY
  14. JANUVIA [Concomitant]
     Indication: HYPERTRIGLYCERIDAEMIA
     Dosage: 100 MG, DAILY
  15. ENYGLID [Concomitant]
     Indication: TYPE 2 DIABETES MELLITUS
     Dosage: 6 MG, DAILY

REACTIONS (1)
  - Pleural effusion [Recovered/Resolved]
